FAERS Safety Report 7010885 (Version 3)
Quarter: 2013Q4

REPORT INFORMATION
  Report Type: Spontaneous
  Country: US (occurrence: None)
  Receive Date: 20090526
  Receipt Date: 20131220
  Transmission Date: 20140711
  Serious: Yes (Hospitalization, Other)
  Sender: FDA-Public Use
  Company Number: 2009S1004154

PATIENT
  Age: 59 Year
  Sex: Female
  Weight: 71.22 kg

DRUGS (3)
  1. SODIUM PHOSPHATE, DIBASIC\SODIUM PHOSPHATE, MONOBASIC, ANHYDROUS [Suspect]
     Indication: COLONOSCOPY
     Dosage: 90ML, 2 IN 24 HOURS, ORAL
     Route: 048
     Dates: start: 20070809, end: 20070810
  2. CARDIZEM CD (DILTIAZEM HYDROCHLORIDE) [Concomitant]
  3. HCTZ (HYDROCHLOROTHIAZIDE) [Concomitant]

REACTIONS (6)
  - Nausea [None]
  - Pain [None]
  - Renal failure acute [None]
  - Dizziness [None]
  - Vomiting [None]
  - Dialysis [None]
